FAERS Safety Report 21217321 (Version 1)
Quarter: 2022Q3

REPORT INFORMATION
  Report Type: Report from Study
  Country: FR (occurrence: FR)
  Receive Date: 20220816
  Receipt Date: 20220816
  Transmission Date: 20221027
  Serious: Yes (Hospitalization, Other)
  Sender: FDA-Public Use
  Company Number: FR-NOVARTISPH-NVSC2022FR182411

PATIENT
  Sex: Male
  Weight: 69 kg

DRUGS (6)
  1. CAPMATINIB [Suspect]
     Active Substance: CAPMATINIB
     Indication: Adenocarcinoma
     Dosage: 800 MG, QD
     Route: 048
     Dates: start: 20220504, end: 20220630
  2. ATENOLOL [Concomitant]
     Active Substance: ATENOLOL
     Indication: Hypertension
     Dosage: 50 MG, QD
     Route: 048
  3. AMLODIPINE [Concomitant]
     Active Substance: AMLODIPINE BESYLATE
     Indication: Hypertension
     Dosage: 5 MG, QD
     Route: 048
  4. KARDEGIC [Concomitant]
     Active Substance: ASPIRIN DL-LYSINE
     Indication: Transient ischaemic attack
     Dosage: 75 MG, QD
     Route: 048
  5. TAMSULOSIN HYDROCHLORIDE [Concomitant]
     Active Substance: TAMSULOSIN HYDROCHLORIDE
     Indication: Prostatism
     Dosage: 0.4 MG
     Route: 048
  6. FUROSEMIDE [Concomitant]
     Active Substance: FUROSEMIDE
     Indication: Hypertension
     Dosage: 40 MG, QD
     Route: 048

REACTIONS (3)
  - Hepatitis acute [Recovered/Resolved]
  - Acute kidney injury [Recovered/Resolved]
  - Renal tubular necrosis [Unknown]

NARRATIVE: CASE EVENT DATE: 20220630
